FAERS Safety Report 6101029-8 (Version None)
Quarter: 2009Q1

REPORT INFORMATION
  Report Type: 
  Country: None (occurrence: None)
  Receive Date: 20090225
  Receipt Date: 20090215
  Transmission Date: 20090719
  Serious: Yes (Hospitalization)
  Sender: FDA-Public Use
  Company Number: CHPA2009US04561

PATIENT
  Age: 36 Year
  Sex: Male
  Weight: 63.5 kg

DRUGS (1)
  1. EX-LAX REG STR CHOCOLATED LAX PCS SEN (NCH)(SENNA GLYCOSIDES (CA SALTS [Suspect]
     Dosage: 180 MG, ONCE/SINGLE, ORAL
     Route: 048
     Dates: start: 20090215, end: 20090215

REACTIONS (3)
  - ABDOMINAL PAIN UPPER [None]
  - OVERDOSE [None]
  - SURGERY [None]
